FAERS Safety Report 20942012 (Version 3)
Quarter: 2022Q4

REPORT INFORMATION
  Report Type: Spontaneous
  Country: JP (occurrence: JP)
  Receive Date: 20220610
  Receipt Date: 20221111
  Transmission Date: 20230113
  Serious: Yes (Hospitalization)
  Sender: FDA-Public Use
  Company Number: JP-ONO-2022JP015190

PATIENT
  Age: 74 Year
  Sex: Male

DRUGS (2)
  1. OPDIVO [Suspect]
     Active Substance: NIVOLUMAB
     Indication: Gastric cancer
     Dosage: UNK
     Route: 041
  2. OPDIVO [Suspect]
     Active Substance: NIVOLUMAB
     Route: 041

REACTIONS (5)
  - Pain [Unknown]
  - Decreased appetite [Unknown]
  - Compression fracture [Unknown]
  - Arthritis [Unknown]
  - Muscular weakness [Unknown]
